FAERS Safety Report 25944637 (Version 2)
Quarter: 2025Q4

REPORT INFORMATION
  Report Type: Report from Study
  Country: EU (occurrence: EU)
  Receive Date: 20251021
  Receipt Date: 20251124
  Transmission Date: 20260118
  Serious: Yes (Other)
  Sender: PFIZER
  Company Number: EU-PFIZER INC-PV202500032149

PATIENT
  Age: 8 Month
  Sex: Male
  Weight: 6.2 kg

DRUGS (1)
  1. CRIZOTINIB [Suspect]
     Active Substance: CRIZOTINIB
     Indication: Histiocytosis
     Dosage: 50 MGX2 (DOSE ADJUSTED ACCORDING TO PATIENT^S WEIGHT)
     Route: 048
     Dates: start: 20250307

REACTIONS (1)
  - Neutropenia [Unknown]
